FAERS Safety Report 16401793 (Version 1)
Quarter: 2019Q2

REPORT INFORMATION
  Report Type: Report from Study
  Country: None (occurrence: BR)
  Receive Date: 20190606
  Receipt Date: 20190606
  Transmission Date: 20190711
  Serious: Yes (Other)
  Sender: FDA-Public Use
  Company Number: BR-ABBVIE-19K-020-2805354-00

PATIENT
  Sex: Female

DRUGS (1)
  1. HUMIRA [Suspect]
     Active Substance: ADALIMUMAB
     Indication: PSORIATIC ARTHROPATHY
     Route: 058

REACTIONS (5)
  - Wound [Recovering/Resolving]
  - Psoriasis [Recovering/Resolving]
  - Nervousness [Unknown]
  - Pain [Recovering/Resolving]
  - Musculoskeletal disorder [Not Recovered/Not Resolved]
